FAERS Safety Report 7046531-X (Version None)
Quarter: 2010Q4

REPORT INFORMATION
  Report Type: 
  Country: None (occurrence: None)
  Receive Date: 20101015
  Receipt Date: 20100412
  Transmission Date: 20110411
  Serious: Yes (Other)
  Sender: FDA-Public Use
  Company Number: US-ASTRAZENECA-2009UW18004

PATIENT
  Age: 586 Month
  Sex: Male

DRUGS (9)
  1. SEROQUEL [Suspect]
     Indication: ANXIETY
     Dosage: 25 TO 200 MG
     Route: 048
     Dates: start: 20070101
  2. ABILIFY [Concomitant]
     Dates: start: 20070101
  3. LAMICTAL [Concomitant]
     Dosage: 50 TO 100 MG
     Dates: start: 20050101
  4. AMBIEN CR [Concomitant]
     Indication: INSOMNIA
     Dates: start: 20070101
  5. PROZAC [Concomitant]
     Dates: start: 20070101
  6. CLONAZEPAM [Concomitant]
     Dates: start: 20070101
  7. PRIMIDONE [Concomitant]
     Dosage: THREE TIMES DAY
     Dates: start: 20070101
  8. MEVACOR [Concomitant]
     Dosage: 20 TO 40 MG
     Dates: start: 20090101
  9. LISINOPRIL [Concomitant]
     Indication: RENAL DISORDER
     Dates: start: 20090101

REACTIONS (2)
  - DIABETES MELLITUS [None]
  - DIABETIC NEPHROPATHY [None]
